FAERS Safety Report 16764876 (Version 2)
Quarter: 2019Q3

REPORT INFORMATION
  Report Type: Spontaneous
  Country: US (occurrence: US)
  Receive Date: 20190903
  Receipt Date: 20190913
  Transmission Date: 20191005
  Serious: Yes (Hospitalization, Other)
  Sender: FDA-Public Use
  Company Number: US-AUROBINDO-AUR-APL-2019-055891

PATIENT

DRUGS (1)
  1. SERTRALINE HYDROCHLORIDE TABLETS [Suspect]
     Active Substance: SERTRALINE HYDROCHLORIDE
     Indication: MAJOR DEPRESSION
     Dosage: 3000 MILLIGRAM, IN TOTAL, INGESTION
     Route: 048

REACTIONS (11)
  - Dysdiadochokinesis [Unknown]
  - Mydriasis [Unknown]
  - Clonus [Unknown]
  - Intentional overdose [Unknown]
  - Prescription drug used without a prescription [Unknown]
  - Tremor [Unknown]
  - Electrocardiogram QT prolonged [Unknown]
  - Delirium [Unknown]
  - Confusional state [Unknown]
  - Toxicity to various agents [Unknown]
  - Mental disorder [Unknown]
